FAERS Safety Report 14851328 (Version 2)
Quarter: 2018Q3

REPORT INFORMATION
  Report Type: Spontaneous
  Country: US (occurrence: US)
  Receive Date: 20180507
  Receipt Date: 20180718
  Transmission Date: 20181010
  Serious: No
  Sender: FDA-Public Use
  Company Number: US-BIOGEN-2018BI00566716

PATIENT
  Sex: Female

DRUGS (1)
  1. TYSABRI [Suspect]
     Active Substance: NATALIZUMAB
     Indication: MULTIPLE SCLEROSIS
     Route: 065
     Dates: start: 20160129

REACTIONS (5)
  - Mobility decreased [Unknown]
  - Bone density abnormal [Unknown]
  - Impaired work ability [Not Recovered/Not Resolved]
  - Fall [Recovered/Resolved]
  - Impaired self-care [Not Recovered/Not Resolved]
